FAERS Safety Report 5270472-1 (Version None)
Quarter: 2007Q1

REPORT INFORMATION
  Report Type: 
  Country: None (occurrence: None)
  Receive Date: 20070320
  Receipt Date: 20070308
  Transmission Date: 20070707
  Serious: Yes (Death)
  Sender: FDA-Public Use
  Company Number: US-PFIZER INC-2007020108

PATIENT
  Age: 66 Year
  Sex: Male

DRUGS (5)
  1. NEURONTIN [Suspect]
     Indication: NEUROPATHY
     Dosage: DAILY DOSE:1800MG-FREQ:DAILY
     Dates: start: 20021101, end: 20040101
  2. LAMICTAL [Concomitant]
  3. DILTIAZEM [Concomitant]
  4. SEROQUEL [Concomitant]
  5. WELLBUTRIN [Concomitant]

REACTIONS (2)
  - COMPLETED SUICIDE [None]
  - INJURY [None]
